FAERS Safety Report 6236521-9 (Version None)
Quarter: 2009Q2

REPORT INFORMATION
  Report Type: 
  Country: None (occurrence: None)
  Receive Date: 20090619
  Receipt Date: 20090610
  Transmission Date: 20091009
  Serious: Yes (Life-Threatening, Hospitalization)
  Sender: FDA-Public Use
  Company Number: B0434267A

PATIENT
  Age: 72 Year
  Sex: Male

DRUGS (12)
  1. AMOXICILLIN [Suspect]
     Indication: DRUG USE FOR UNKNOWN INDICATION
     Dosage: 1500MG PER DAY
     Route: 048
  2. CARBOPLATIN [Suspect]
     Route: 065
     Dates: start: 20060201
  3. GEMCITABINE [Suspect]
     Route: 065
     Dates: start: 20060201
  4. OMEPRAZOLE [Suspect]
     Route: 048
     Dates: start: 20060601
  5. SIMVASTATIN [Suspect]
     Dosage: 80MG PER DAY
     Route: 048
  6. ASPIRIN [Concomitant]
     Indication: CARDIOVASCULAR EVENT PROPHYLAXIS
     Dosage: 75MG PER DAY
     Route: 065
  7. ATENOLOL [Concomitant]
     Indication: HYPERTENSION
     Dosage: 50MG PER DAY
     Route: 065
  8. CHLORDIAZEPOXIDE [Concomitant]
     Dosage: 10MG FOUR TIMES PER DAY
     Route: 065
     Dates: start: 20060518
  9. CIPROFLOXACIN [Concomitant]
     Route: 065
  10. CLARITHROMYCIN [Concomitant]
     Route: 065
  11. CORACTEN [Concomitant]
     Indication: HYPERTENSION
     Dosage: 30MG PER DAY
     Route: 065
  12. GRANISETRON HCL [Concomitant]
     Route: 048
     Dates: start: 20060401

REACTIONS (2)
  - RENAL FAILURE ACUTE [None]
  - RHABDOMYOLYSIS [None]
